FAERS Safety Report 4554442-4 (Version None)
Quarter: 2005Q1

REPORT INFORMATION
  Report Type: 
  Country: None (occurrence: None)
  Receive Date: 20050118
  Receipt Date: 20041022
  Transmission Date: 20050727
  Serious: Yes (Disabling)
  Sender: FDA-Public Use
  Company Number: GBWYE143726OCT04

PATIENT
  Sex: Female
  Weight: 55 kg

DRUGS (8)
  1. ENBREL [Suspect]
     Indication: RHEUMATOID ARTHRITIS
     Route: 058
     Dates: start: 20031101, end: 20040601
  2. METHOTREXATE [Concomitant]
  3. CALCIUM CARBONATE [Concomitant]
  4. DIHYDROCODEINE [Concomitant]
  5. PREDNISOLONE [Concomitant]
  6. MISOPROSTOL [Concomitant]
  7. CYANOCOBALAMIN [Concomitant]
  8. HORMONE NOS [Concomitant]

REACTIONS (4)
  - CARDIAC FAILURE [None]
  - CARDIAC TAMPONADE [None]
  - PERICARDIAL EFFUSION [None]
  - PLEURAL EFFUSION [None]
